FAERS Safety Report 23799377 (Version 3)
Quarter: 2024Q2

REPORT INFORMATION
  Report Type: Spontaneous
  Country: US (occurrence: US)
  Receive Date: 20240430
  Receipt Date: 20240510
  Transmission Date: 20240716
  Serious: No
  Sender: FDA-Public Use
  Company Number: US-PFIZER INC-PV202400044448

PATIENT

DRUGS (2)
  1. GENOTROPIN [Suspect]
     Active Substance: SOMATROPIN
     Dosage: ALTERNATE INJECTING 1 MG AND 1.2 MG UNDER SKIN EVERY OTHER DAY
     Route: 058
  2. GENOTROPIN [Suspect]
     Active Substance: SOMATROPIN
     Dosage: ALTERNATE INJECTING 1 MG AND 1.2 MG UNDER SKIN EVERY OTHER DAY
     Route: 058

REACTIONS (3)
  - Device defective [Unknown]
  - Device breakage [Unknown]
  - Device leakage [Unknown]
